FAERS Safety Report 16680798 (Version 3)
Quarter: 2019Q4

REPORT INFORMATION
  Report Type: Spontaneous
  Country: CN (occurrence: CN)
  Receive Date: 20190808
  Receipt Date: 20191002
  Transmission Date: 20200122
  Serious: Yes (Other)
  Sender: FDA-Public Use
  Company Number: CN-ASTRAZENECA-2019SF12207

PATIENT
  Sex: Female
  Weight: 40 kg

DRUGS (1)
  1. IRESSA [Suspect]
     Active Substance: GEFITINIB
     Indication: NON-SMALL CELL LUNG CANCER
     Route: 048
     Dates: start: 2017, end: 2019

REACTIONS (6)
  - Metastases to central nervous system [Unknown]
  - Nerve compression [Unknown]
  - Malignant neoplasm progression [Unknown]
  - Rash [Unknown]
  - Drug resistance [Unknown]
  - Pruritus [Recovered/Resolved]
